FAERS Safety Report 16723481 (Version 4)
Quarter: 2019Q4

REPORT INFORMATION
  Report Type: Spontaneous
  Country: US (occurrence: US)
  Receive Date: 20190821
  Receipt Date: 20191219
  Transmission Date: 20200122
  Serious: Yes (Life-Threatening, Hospitalization, Other)
  Sender: FDA-Public Use
  Company Number: US-PURDUE PHARMA-GBR-2019-0069358

PATIENT
  Age: 3 Year
  Sex: Female
  Weight: 13.5 kg

DRUGS (7)
  1. HYDROCODONE BITARTRATE (SIMILAR TO NDA 206627) [Suspect]
     Active Substance: HYDROCODONE BITARTRATE
     Indication: PRODUCT USED FOR UNKNOWN INDICATION
     Dosage: INGESTION
     Route: 048
  2. HYDROMORPHONE HCL (SIMILAR TO 19-892) [Suspect]
     Active Substance: HYDROMORPHONE HYDROCHLORIDE
     Indication: PRODUCT USED FOR UNKNOWN INDICATION
     Dosage: INGESTION
     Route: 048
  3. FENTANYL. [Suspect]
     Active Substance: FENTANYL
     Dosage: 15 MG, SINGLE (ON DAY 1 1 MG/KG)
     Route: 042
  4. FENTANYL. [Suspect]
     Active Substance: FENTANYL
     Dosage: 100 MG, TOTAL
     Route: 042
  5. DIHYDROCODEINE BITARTRATE [Suspect]
     Active Substance: DIHYDROCODEINE BITARTRATE
     Indication: PRODUCT USED FOR UNKNOWN INDICATION
     Dosage: INGESTION
     Route: 048
  6. FENTANYL. [Suspect]
     Active Substance: FENTANYL
     Indication: SEDATION
     Dosage: 2 MG/KG, Q1H (STARTED DAY 1 AT 12:30AM)
     Route: 042
  7. FENTANYL. [Suspect]
     Active Substance: FENTANYL
     Indication: ANALGESIC THERAPY
     Dosage: 7 MG, DAILY (ON DAY 0 0.5 MG/KG)
     Route: 042

REACTIONS (12)
  - Intracranial pressure increased [Recovered/Resolved]
  - Brain oedema [Recovered/Resolved]
  - Neurotoxicity [Recovered/Resolved]
  - Hydrocephalus [Recovered/Resolved]
  - Toxicity to various agents [Recovered/Resolved]
  - Condition aggravated [Recovered/Resolved]
  - Dilatation ventricular [Recovered/Resolved]
  - Brain herniation [Recovered/Resolved]
  - Bradycardia [Recovered/Resolved]
  - Hypertension [Recovered/Resolved]
  - Accidental exposure to product [Recovered/Resolved]
  - Toxic leukoencephalopathy [Recovered/Resolved]
